FAERS Safety Report 8504244-9 (Version None)
Quarter: 2012Q2

REPORT INFORMATION
  Report Type: 
  Country: None (occurrence: None)
  Receive Date: 20120405
  Receipt Date: 20110407
  Transmission Date: 20120825
  Serious: Yes (Life-Threatening, Disabling, Other)
  Sender: FDA-Public Use
  Company Number: PHHY2010US71513

PATIENT
  Age: 53 Year
  Sex: Male
  Weight: 78 kg

DRUGS (5)
  1. SIMVASTATIN [Concomitant]
  2. TESTOSTERONE [Concomitant]
  3. RECLAST [Suspect]
     Dosage: NFUSION
  4. CITRACAL PLUS (CALCIUM CITRATE, COLECALCIFEROL) [Concomitant]
  5. PRILOSEC [Concomitant]

REACTIONS (6)
  - DYSPNOEA [None]
  - PAIN [None]
  - PARAESTHESIA [None]
  - JOINT SWELLING [None]
  - MYALGIA [None]
  - OEDEMA PERIPHERAL [None]
